FAERS Safety Report 24971753 (Version 2)
Quarter: 2025Q2

REPORT INFORMATION
  Report Type: Spontaneous
  Country: CA (occurrence: CA)
  Receive Date: 20250214
  Receipt Date: 20250418
  Transmission Date: 20250717
  Serious: Yes (Other)
  Sender: PFIZER
  Company Number: CA-PFIZER INC-202400242852

PATIENT
  Age: 68 Year
  Sex: Male

DRUGS (6)
  1. RUXIENCE [Suspect]
     Active Substance: RITUXIMAB-PVVR
     Indication: Granulomatosis with polyangiitis
     Dosage: 655 MG, FOR 4 WEEKS (WEEK 1)
     Route: 042
     Dates: start: 20240816, end: 20240905
  2. RUXIENCE [Suspect]
     Active Substance: RITUXIMAB-PVVR
     Dosage: 655 MG, WEEK 2
     Route: 042
     Dates: start: 20240823, end: 20240823
  3. RUXIENCE [Suspect]
     Active Substance: RITUXIMAB-PVVR
     Dosage: 655 MG, WEEK 2
     Route: 042
     Dates: start: 20240823, end: 20240823
  4. RUXIENCE [Suspect]
     Active Substance: RITUXIMAB-PVVR
     Route: 042
     Dates: start: 20240905
  5. RUXIENCE [Suspect]
     Active Substance: RITUXIMAB-PVVR
     Route: 042
     Dates: start: 20240905
  6. PENTAMIDINE [Concomitant]
     Active Substance: PENTAMIDINE
     Indication: Prophylaxis
     Dosage: 300 MG, MONTHLY

REACTIONS (6)
  - Arteriovenous fistula operation [Unknown]
  - Red blood cell count decreased [Unknown]
  - Hepatic steatosis [Not Recovered/Not Resolved]
  - Off label use [Unknown]
  - Inappropriate schedule of product administration [Unknown]
  - Off label use [Unknown]

NARRATIVE: CASE EVENT DATE: 20240905
